FAERS Safety Report 10180370 (Version 1)
Quarter: 2014Q2

REPORT INFORMATION
  Report Type: Spontaneous
  Country: US (occurrence: US)
  Receive Date: 20140519
  Receipt Date: 20140519
  Transmission Date: 20141212
  Serious: No
  Sender: FDA-Public Use
  Company Number: US-AMGEN INC.-USASP2013078953

PATIENT
  Age: 81 Year
  Sex: Female

DRUGS (5)
  1. PROLIA [Suspect]
     Indication: OSTEOPOROSIS POSTMENOPAUSAL
     Dosage: 60 MG, UNK
     Route: 065
  2. OMEPRAZOLE [Concomitant]
     Dosage: 20 MG, UNK
     Route: 065
  3. PRAVASTATIN [Concomitant]
     Dosage: 40 MG, UNK
     Route: 065
  4. VITAMINS                           /90003601/ [Concomitant]
     Dosage: UNK
     Route: 065
  5. ALPHAGAN [Concomitant]
     Dosage: 0.1 %, BID
     Route: 065

REACTIONS (4)
  - Vision blurred [Recovering/Resolving]
  - Feeling abnormal [Recovering/Resolving]
  - Balance disorder [Recovering/Resolving]
  - Inappropriate schedule of drug administration [Unknown]
